FAERS Safety Report 5932319-7 (Version None)
Quarter: 2008Q4

REPORT INFORMATION
  Report Type: 
  Country: None (occurrence: None)
  Receive Date: 20081023
  Receipt Date: 20081016
  Transmission Date: 20090506
  Serious: Yes (Death)
  Sender: FDA-Public Use
  Company Number: 2008-185472-NL

PATIENT
  Age: 45 Year
  Sex: Female

DRUGS (7)
  1. MIRTAZAPINE [Suspect]
     Dosage: ORAL
     Route: 048
  2. FENTANYL [Suspect]
     Dosage: DF
  3. AMLODIPINE BESYLATE AND BENAZEPRIL HCL [Suspect]
     Dosage: ORAL
     Route: 048
  4. QUETIAPINE FUMARATE [Suspect]
     Dosage: ORAL
     Route: 048
  5. CITALOPRAM HYDROBROMIDE [Suspect]
     Dosage: ORAL
     Route: 048
  6. DIPHENHYDRAMINE HCL [Suspect]
  7. PROMETHAZINE [Suspect]

REACTIONS (1)
  - ADVERSE EVENT [None]
